FAERS Safety Report 6035459-X (Version None)
Quarter: 2009Q1

REPORT INFORMATION
  Report Type: 
  Country: None (occurrence: None)
  Receive Date: 20090112
  Receipt Date: 20090112
  Transmission Date: 20090719
  Serious: No
  Sender: FDA-Public Use
  Company Number: None

PATIENT
  Age: 50 Year
  Sex: Female
  Weight: 68.0396 kg

DRUGS (3)
  1. SUMATRIPTAN SUCCINATE [Suspect]
     Indication: MIGRAINE
     Dosage: ONE TAB OR INJ PRN MIGRAINE PRN
     Dates: start: 20081001, end: 20081231
  2. SUMATRIPTAN SUCCINATE [Suspect]
     Indication: MIGRAINE
     Dosage: ONE TAB OR INJ PRN MIGRAINE PRN
     Dates: start: 20090101
  3. SUMATRIPTAN TABLETS 100MG GLAXOSMITHKLINE BY PENN LABS [Suspect]

REACTIONS (2)
  - DRUG INEFFECTIVE [None]
  - PRODUCT COUNTERFEIT [None]
